FAERS Safety Report 9482478 (Version 2)
Quarter: 2013Q4

REPORT INFORMATION
  Report Type: Spontaneous
  Country: GB (occurrence: GB)
  Receive Date: 20130828
  Receipt Date: 20131209
  Transmission Date: 20140711
  Serious: Yes (Disabling, Other)
  Sender: FDA-Public Use
  Company Number: PHHY2013GB091429

PATIENT
  Age: 27 Year
  Sex: Male
  Weight: 70.76 kg

DRUGS (10)
  1. SERTRALINE HYDROCHLORIDE [Suspect]
     Indication: ANXIETY
     Dosage: 50 MG, UNK
     Route: 048
     Dates: start: 2004, end: 2005
  2. SERTRALINE HYDROCHLORIDE [Suspect]
     Dosage: 200 MG, UNK (PROGRESSING UP TO 200MG, CUT TO 100MG, 150MG FOR  6 WEEKS, BACK TO 100MG BEFORE DISCONT
     Route: 048
     Dates: start: 2006
  3. SERTRALINE HYDROCHLORIDE [Suspect]
     Dosage: 100 MG, UNK(PROGRESSING UP TO 200MG, CUT TO 100MG, 150MG FOR  6 WEEKS, BACK TO 100MG BEFORE DISCONTI
     Route: 048
     Dates: start: 2009
  4. SERTRALINE HYDROCHLORIDE [Suspect]
     Dosage: 150 MG, UNK (PROGRESSING UP TO 200MG, CUT TO 100MG, 150MG FOR  6 WEEKS, BACK TO 100MG BEFORE DISCONT
     Route: 048
     Dates: start: 201203, end: 201204
  5. SERTRALINE HYDROCHLORIDE [Suspect]
     Dosage: 100 MG, PROGRESSING UP TO 200MG, CUT TO 100MG, 150MG FOR  6 WEEKS, BACK TO 100MG BEFORE DISCONTINUIN
     Route: 048
     Dates: start: 201204, end: 2012
  6. FEXOFENADINE HYDROCHLORIDE [Concomitant]
  7. VENTOLIN [Concomitant]
  8. QVAR [Concomitant]
  9. AVAMYS [Concomitant]
  10. DYMISTA [Concomitant]

REACTIONS (6)
  - Anorgasmia [Not Recovered/Not Resolved]
  - Sexual dysfunction [Not Recovered/Not Resolved]
  - Genital hypoaesthesia [Not Recovered/Not Resolved]
  - Premature ejaculation [Not Recovered/Not Resolved]
  - Erectile dysfunction [Recovered/Resolved]
  - Suicidal ideation [Unknown]
